FAERS Safety Report 9860913 (Version 2)
Quarter: 2014Q1

REPORT INFORMATION
  Report Type: Spontaneous
  Country: US (occurrence: US)
  Receive Date: 20140202
  Receipt Date: 20140202
  Transmission Date: 20141002
  Serious: Yes (Hospitalization)
  Sender: FDA-Public Use
  Company Number: US-ALLERGAN-1302083US

PATIENT
  Age: 63 Year
  Sex: Male
  Weight: 57.6 kg

DRUGS (2)
  1. BOTOX [Suspect]
     Indication: MUSCLE SPASTICITY
     Dosage: 400 UNITS, SINGLE
     Route: 030
     Dates: start: 20120824, end: 20120824
  2. BOTOX [Suspect]
     Dosage: UNK
     Dates: start: 20120531, end: 20120531

REACTIONS (2)
  - Pneumonia [Unknown]
  - Influenza like illness [Unknown]
